FAERS Safety Report 8555428-5 (Version None)
Quarter: 2012Q3

REPORT INFORMATION
  Report Type: 
  Country: None (occurrence: None)
  Receive Date: 20120731
  Receipt Date: 20110825
  Transmission Date: 20120928
  Serious: Yes (Other)
  Sender: FDA-Public Use
  Company Number: US-ASTRAZENECA-2011SE12727

PATIENT
  Sex: Male

DRUGS (7)
  1. NEURONTIN [Concomitant]
     Dates: start: 20030912
  2. WELLBUTRIN SR [Concomitant]
     Dosage: 100 MG LATE AFTERNOON AND 150 MG EVERY MORNING
     Dates: start: 20031001
  3. SEROQUEL [Suspect]
     Dosage: 200 MG QAM AND 300 MG QHS
     Route: 048
     Dates: start: 20030923
  4. TRAZODONE HCL [Concomitant]
     Dates: start: 20030912
  5. WELLBUTRIN SR [Concomitant]
     Route: 048
     Dates: start: 20030919
  6. SEROQUEL [Suspect]
     Dosage: 100 MG TID AND 200 MG HS
     Route: 048
     Dates: start: 20030912
  7. PROZAC [Concomitant]
     Dates: start: 20030912

REACTIONS (3)
  - PANCREATITIS [None]
  - TYPE 2 DIABETES MELLITUS [None]
  - DIABETIC COMA [None]
